FAERS Safety Report 14267779 (Version 1)
Quarter: 2017Q4

REPORT INFORMATION
  Report Type: Spontaneous
  Country: CN (occurrence: CN)
  Receive Date: 20171211
  Receipt Date: 20171211
  Transmission Date: 20180321
  Serious: Yes (Hospitalization, Disabling)
  Sender: FDA-Public Use
  Company Number: PHHY2017CN178835

PATIENT
  Age: 60 Year
  Sex: Female
  Weight: 43 kg

DRUGS (2)
  1. FLUVASTATIN [Suspect]
     Active Substance: FLUVASTATIN SODIUM
     Indication: HYPERCHOLESTEROLAEMIA
     Dosage: 80 MG, QD
     Route: 048
     Dates: start: 20150420, end: 20170407
  2. GLUCOBAY [Suspect]
     Active Substance: ACARBOSE
     Indication: HYPERGLYCAEMIA
     Dosage: 50 MG, TID
     Route: 048
     Dates: start: 20150416, end: 20170407

REACTIONS (1)
  - Hepatic enzyme increased [Recovered/Resolved]

NARRATIVE: CASE EVENT DATE: 20170103
